FAERS Safety Report 7854111-9 (Version None)
Quarter: 2011Q4

REPORT INFORMATION
  Report Type: 
  Country: None (occurrence: None)
  Receive Date: 20111026
  Receipt Date: 20111019
  Transmission Date: 20120403
  Serious: Yes (Hospitalization)
  Sender: FDA-Public Use
  Company Number: FR-SANOFI-AVENTIS-2011SA068577

PATIENT
  Age: 61 Year
  Sex: Female

DRUGS (6)
  1. ARANESP [Suspect]
     Indication: MYELODYSPLASTIC SYNDROME
     Dates: start: 20101212
  2. PLAVIX [Suspect]
     Route: 048
     Dates: start: 20060531
  3. AZACITIDINE [Suspect]
     Indication: MYELODYSPLASTIC SYNDROME
     Route: 058
     Dates: start: 20100802
  4. SIMVASTATIN [Suspect]
     Indication: HYPERCHOLESTEROLAEMIA
     Route: 048
  5. ALPRAZOLAM [Suspect]
     Route: 048
  6. ZOFRAN [Suspect]
     Route: 048
     Dates: start: 20100802

REACTIONS (1)
  - ATRIAL FIBRILLATION [None]
